FAERS Safety Report 9035742 (Version 1)
Quarter: 2013Q1

REPORT INFORMATION
  Report Type: Report from Study
  Country: US (occurrence: US)
  Receive Date: 20130129
  Receipt Date: 20130129
  Transmission Date: 20140127
  Serious: No
  Sender: FDA-Public Use
  Company Number: US-ABBOTT-12P-163-0924808-00

PATIENT
  Sex: Female
  Weight: 77.18 kg

DRUGS (15)
  1. HUMIRA 40 MG/0.8 ML PEN [Suspect]
     Indication: CROHN^S DISEASE
     Dates: start: 201109
  2. METHOTREXATE [Concomitant]
     Indication: POLYARTHRITIS
  3. ESTRADIOL [Concomitant]
     Indication: HORMONE REPLACEMENT THERAPY
  4. BENTYL [Concomitant]
     Indication: CROHN^S DISEASE
  5. ATIVAN [Concomitant]
     Indication: ANXIETY
  6. BUSPAR [Concomitant]
     Indication: ANXIETY
  7. EFFEXOR [Concomitant]
     Indication: BIPOLAR DISORDER
  8. ABILIFY [Concomitant]
     Indication: BIPOLAR DISORDER
  9. INVEGA [Concomitant]
     Indication: BIPOLAR DISORDER
  10. LEVOTHYROXINE [Concomitant]
     Indication: HYPOTHYROIDISM
  11. HYDROCHLOROTHIAZIDE [Concomitant]
     Indication: FLUID RETENTION
  12. SUBOXONE [Concomitant]
     Indication: PAIN
  13. NEURONTIN [Concomitant]
     Indication: BIPOLAR DISORDER
  14. NEURONTIN [Concomitant]
     Indication: PAIN
  15. LOMOTIL [Concomitant]
     Indication: DIARRHOEA

REACTIONS (2)
  - Urinary tract infection [Recovered/Resolved]
  - Urinary tract infection [Recovered/Resolved]
